FAERS Safety Report 22962493 (Version 3)
Quarter: 2023Q4

REPORT INFORMATION
  Report Type: Spontaneous
  Country: DE (occurrence: DE)
  Receive Date: 20230920
  Receipt Date: 20231204
  Transmission Date: 20240109
  Serious: Yes (Hospitalization)
  Sender: FDA-Public Use
  Company Number: DE-SANOFI-01731072

PATIENT
  Age: 63 Year
  Sex: Male
  Weight: 104 kg

DRUGS (13)
  1. DUPIXENT [Suspect]
     Active Substance: DUPILUMAB
     Indication: Nasal polyps
     Dosage: 300 MG, QOW
     Route: 058
     Dates: start: 20220128, end: 202308
  2. RISPERDAL CONSTA [Concomitant]
     Active Substance: RISPERIDONE
     Indication: Schizophrenia
     Dosage: 37.5 UNK, QOW (ONCE)
  3. RISPERDAL CONSTA [Concomitant]
     Active Substance: RISPERIDONE
     Dosage: 36 MG, Q3W
  4. CLOZAPINE [Concomitant]
     Active Substance: CLOZAPINE
     Dosage: 200 MG, QD (0 ? 0 - 1)
  5. CLOZAPINE [Concomitant]
     Active Substance: CLOZAPINE
     Dosage: 50 UNK
  6. ZOPICLONE [Concomitant]
     Active Substance: ZOPICLONE
     Dosage: 7.5 0 ? 0 ? 0 ? 0,5 AS NEEDED
  7. FLUTICASONE [Concomitant]
     Active Substance: FLUTICASONE
     Dosage: UNK
  8. VILANTEROL [Concomitant]
     Active Substance: VILANTEROL
     Indication: Asthma
  9. BUDESONIDE [Concomitant]
     Active Substance: BUDESONIDE
     Dosage: 1 ? 0 - 1
  10. LORAZEPAM [Concomitant]
     Active Substance: LORAZEPAM
     Dosage: AS NEEDED
  11. GASTROZEPIN [Concomitant]
     Active Substance: PIRENZEPINE HYDROCHLORIDE
     Dosage: 200 MG, QD
  12. NASONEX [Concomitant]
     Active Substance: MOMETASONE FUROATE
     Dosage: UNK
  13. FLUTICASONE FUROATE\VILANTEROL TRIFENATATE [Concomitant]
     Active Substance: FLUTICASONE FUROATE\VILANTEROL TRIFENATATE
     Dosage: UNK

REACTIONS (3)
  - Psoriasis [Unknown]
  - Rash pruritic [Not Recovered/Not Resolved]
  - Skin exfoliation [Unknown]

NARRATIVE: CASE EVENT DATE: 20230101
